FAERS Safety Report 17705683 (Version 1)
Quarter: 2020Q2

REPORT INFORMATION
  Report Type: Spontaneous
  Country: US (occurrence: US)
  Receive Date: 20200424
  Receipt Date: 20200424
  Transmission Date: 20200714
  Serious: Yes (Other)
  Sender: FDA-Public Use
  Company Number: US-PFIZER INC-2020161856

PATIENT
  Age: 22 Year
  Sex: Male
  Weight: 83.91 kg

DRUGS (3)
  1. VIAGRA [Suspect]
     Active Substance: SILDENAFIL CITRATE
     Dosage: 400 MG
  2. MOTRIN [Interacting]
     Active Substance: IBUPROFEN
     Dosage: 800 MG
  3. MARIJUANA [Interacting]
     Active Substance: CANNABIS SATIVA SUBSP. INDICA TOP
     Dosage: UNK

REACTIONS (5)
  - Accidental overdose [Unknown]
  - Drug interaction [Unknown]
  - Painful erection [Unknown]
  - Erection increased [Unknown]
  - Product dispensing error [Unknown]
